FAERS Safety Report 21382409 (Version 2)
Quarter: 2022Q3

REPORT INFORMATION
  Report Type: Report from Study
  Country: US (occurrence: None)
  Receive Date: 20220927
  Receipt Date: 20220929
  Transmission Date: 20221027
  Serious: Yes (Hospitalization)
  Sender: FDA-Public Use
  Company Number: US-ROCHE-3069058

PATIENT
  Age: 50 Year
  Sex: Male
  Weight: 72.5 kg

DRUGS (22)
  1. BALOXAVIR MARBOXIL [Suspect]
     Active Substance: BALOXAVIR MARBOXIL
     Indication: Influenza
     Route: 065
  2. OSELTAMIVIR [Suspect]
     Active Substance: OSELTAMIVIR
     Indication: Influenza
     Route: 065
  3. AMPHOTERICIN B [Concomitant]
     Active Substance: AMPHOTERICIN B
  4. ENASIDENIB [Concomitant]
     Active Substance: ENASIDENIB
  5. GABAPENTIN [Concomitant]
     Active Substance: GABAPENTIN
  6. LEVETIRACETAM [Concomitant]
     Active Substance: LEVETIRACETAM
  7. LEVOFLOXACIN [Concomitant]
     Active Substance: LEVOFLOXACIN
  8. NYSTATIN [Concomitant]
     Active Substance: NYSTATIN
     Dosage: 10,000 UNITS/ML SUSPENION
  9. ONDANSETRON [Concomitant]
     Active Substance: ONDANSETRON
  10. PANTOPRAZOLE [Concomitant]
     Active Substance: PANTOPRAZOLE
  11. POSACONAZOLE [Concomitant]
     Active Substance: POSACONAZOLE
  12. POTASSIUM CHLORIDE [Concomitant]
     Active Substance: POTASSIUM CHLORIDE
  13. SULFAMETHOXAZOLE\TRIMETHOPRIM [Concomitant]
     Active Substance: SULFAMETHOXAZOLE\TRIMETHOPRIM
     Dosage: 800MG-160MG PER TABLET
  14. TERBINAFINE HYDROCHLORIDE [Concomitant]
     Active Substance: TERBINAFINE HYDROCHLORIDE
  15. URSODIOL [Concomitant]
     Active Substance: URSODIOL
  16. VALACYCLOVIR [Concomitant]
     Active Substance: VALACYCLOVIR HYDROCHLORIDE
  17. ZINC GLUCONATE [Concomitant]
     Active Substance: ZINC GLUCONATE
  18. ASCORBIC ACID [Concomitant]
     Active Substance: ASCORBIC ACID
  19. CHOLECALCIFEROL [Concomitant]
     Active Substance: CHOLECALCIFEROL
  20. VITAMIN D3 [Concomitant]
     Active Substance: CHOLECALCIFEROL
     Dosage: 25 MCG (1000 UNIT)
  21. VITAMINS [Concomitant]
     Active Substance: VITAMINS
  22. SODIUM CHLORIDE [Concomitant]
     Active Substance: SODIUM CHLORIDE
     Dosage: 0.9% FLUSH SYRINGE 10 ML

REACTIONS (4)
  - Febrile neutropenia [Recovered/Resolved]
  - Sepsis [Recovered/Resolved]
  - Vomiting [Recovered/Resolved]
  - Nausea [Recovered/Resolved]

NARRATIVE: CASE EVENT DATE: 20220328
